FAERS Safety Report 11229846 (Version 1)
Quarter: 2015Q2

REPORT INFORMATION
  Report Type: Spontaneous
  Country: US (occurrence: US)
  Receive Date: 20150630
  Receipt Date: 20150630
  Transmission Date: 20150821
  Serious: No
  Sender: FDA-Public Use
  Company Number: US-BAUSCH-BL-2014-004303

PATIENT
  Age: 12 Month
  Sex: Female
  Weight: 8.17 kg

DRUGS (1)
  1. GENTAMICIN SULFATE OPHTHALMIC SOLUTION USP 0.3% [Suspect]
     Active Substance: GENTAMICIN SULFATE
     Indication: CONJUNCTIVITIS
     Dosage: ONE TO TWO DROPS TO AFFECTED EYES
     Route: 047
     Dates: start: 20140821, end: 20140821

REACTIONS (2)
  - Eye swelling [Recovering/Resolving]
  - Blepharal pigmentation [Unknown]

NARRATIVE: CASE EVENT DATE: 20140821
